FAERS Safety Report 5021440-6 (Version None)
Quarter: 2006Q2

REPORT INFORMATION
  Report Type: 
  Country: None (occurrence: None)
  Receive Date: 20060605
  Receipt Date: 20060324
  Transmission Date: 20061013
  Serious: Yes (Other)
  Sender: FDA-Public Use
  Company Number: US-2006-011044

PATIENT
  Age: 67 Year
  Sex: Female

DRUGS (9)
  1. BETASERON [Suspect]
     Indication: SECONDARY PROGRESSIVE MULTIPLE SCLEROSIS
     Dosage: SEE IMAGE
     Route: 058
     Dates: start: 20050927, end: 20051018
  2. BETASERON [Suspect]
     Indication: SECONDARY PROGRESSIVE MULTIPLE SCLEROSIS
     Dosage: SEE IMAGE
     Route: 058
     Dates: start: 20051028, end: 20060324
  3. BACLOFEN [Concomitant]
  4. SOLU-MEDROL [Concomitant]
  5. LASIX [Concomitant]
  6. INDERAL LA [Concomitant]
  7. DETROL - SLOW RELEASE (TOLTERODINE L-TARTRATE) [Concomitant]
  8. HIPREX [Concomitant]
  9. MULTIVITAMINS (RETINOL, PANTHENOL) [Concomitant]

REACTIONS (5)
  - ALANINE AMINOTRANSFERASE INCREASED [None]
  - ASPARTATE AMINOTRANSFERASE INCREASED [None]
  - BLOOD ALKALINE PHOSPHATASE INCREASED [None]
  - JAUNDICE [None]
  - SERUM FERRITIN INCREASED [None]
